FAERS Safety Report 7572346-X (Version None)
Quarter: 2011Q2

REPORT INFORMATION
  Report Type: 
  Country: None (occurrence: None)
  Receive Date: 20110624
  Receipt Date: 20110617
  Transmission Date: 20111010
  Serious: Yes (Other)
  Sender: FDA-Public Use
  Company Number: PHHY2011US54719

PATIENT
  Age: 48 Year
  Sex: Male
  Weight: 71.655 kg

DRUGS (1)
  1. TOBI [Suspect]
     Dosage: 300 MG, BID (28 DAYS ON AND 28 DAYS OFF)
     Dates: start: 20100823, end: 20110428

REACTIONS (1)
  - PULMONARY HAEMORRHAGE [None]
